FAERS Safety Report 18705200 (Version 1)
Quarter: 2021Q1

REPORT INFORMATION
  Report Type: Spontaneous
  Country: GB (occurrence: GB)
  Receive Date: 20210106
  Receipt Date: 20210106
  Transmission Date: 20210419
  Serious: Yes (Hospitalization, Other)
  Sender: FDA-Public Use
  Company Number: GB-SA-2021SA002806

PATIENT

DRUGS (7)
  1. BIOTIN [Concomitant]
     Active Substance: BIOTIN
     Dosage: UNK
     Route: 065
  2. LEVOTHYROXINE SODIUM. [Concomitant]
     Active Substance: LEVOTHYROXINE SODIUM
     Dosage: UNK
     Route: 065
  3. CLADRIBINE. [Suspect]
     Active Substance: CLADRIBINE
     Dosage: 10 MG, QD
     Route: 048
     Dates: start: 20201125, end: 20201127
  4. LEMTRADA [Suspect]
     Active Substance: ALEMTUZUMAB
     Indication: MULTIPLE SCLEROSIS
     Dosage: 1 DF, QD
     Route: 042
     Dates: start: 20190325, end: 20190330
  5. CLADRIBINE. [Suspect]
     Active Substance: CLADRIBINE
     Indication: MULTIPLE SCLEROSIS
     Dosage: 20 MG, QD
     Route: 048
     Dates: start: 20201123, end: 20201124
  6. RAMIPRIL. [Concomitant]
     Active Substance: RAMIPRIL
     Indication: HYPERTENSION
     Dosage: UNK
     Route: 065
  7. COLECALCIFEROL [Concomitant]
     Active Substance: CHOLECALCIFEROL
     Dosage: UNK
     Route: 065

REACTIONS (1)
  - Thrombocytopenia [Recovering/Resolving]

NARRATIVE: CASE EVENT DATE: 20201213
